FAERS Safety Report 18614903 (Version 83)
Quarter: 2024Q1

REPORT INFORMATION
  Report Type: Report from Study
  Country: CO (occurrence: CO)
  Receive Date: 20201214
  Receipt Date: 20240315
  Transmission Date: 20240410
  Serious: Yes (Hospitalization, Disabling, Other)
  Sender: FDA-Public Use
  Company Number: CO-TAKEDA-CO202011739

PATIENT
  Age: 54 Year
  Sex: Male
  Weight: 65 kg

DRUGS (5)
  1. VELAGLUCERASE ALFA [Suspect]
     Active Substance: VELAGLUCERASE ALFA
     Indication: Gaucher^s disease
     Dosage: 2400 INTERNATIONAL UNIT, Q2WEEKS
     Route: 042
     Dates: start: 20141101
  2. VELAGLUCERASE ALFA [Suspect]
     Active Substance: VELAGLUCERASE ALFA
     Indication: Gaucher^s disease type I
     Dosage: 3200 INTERNATIONAL UNIT, Q2WEEKS
     Route: 042
     Dates: start: 20161124
  3. VELAGLUCERASE ALFA [Suspect]
     Active Substance: VELAGLUCERASE ALFA
     Dosage: 2400 INTERNATIONAL UNIT, Q2WEEKS
     Route: 042
  4. COVID-19 VACCINE NOS [Suspect]
     Active Substance: COVID-19 VACCINE NOS
     Indication: Product used for unknown indication
     Dosage: UNK
     Route: 065
     Dates: start: 20210728
  5. ALENDRONATE [Concomitant]
     Active Substance: ALENDRONATE SODIUM
     Dosage: UNK
     Route: 065

REACTIONS (79)
  - Platelet count decreased [Unknown]
  - Haematochezia [Recovered/Resolved]
  - Mobility decreased [Not Recovered/Not Resolved]
  - Haemorrhoidal haemorrhage [Not Recovered/Not Resolved]
  - Osteoporosis [Unknown]
  - Diplegia [Recovered/Resolved]
  - Diarrhoea haemorrhagic [Recovered/Resolved]
  - Burn oral cavity [Unknown]
  - Bladder stenosis [Recovering/Resolving]
  - Rectal haemorrhage [Unknown]
  - General physical health deterioration [Not Recovered/Not Resolved]
  - Discomfort [Recovering/Resolving]
  - Tinnitus [Recovered/Resolved]
  - Urine output decreased [Unknown]
  - Drug ineffective [Unknown]
  - Road traffic accident [Unknown]
  - Head injury [Unknown]
  - Anxiety [Unknown]
  - Urinary incontinence [Unknown]
  - Prostatic pain [Not Recovered/Not Resolved]
  - Discouragement [Not Recovered/Not Resolved]
  - Procedural pain [Unknown]
  - Food poisoning [Recovered/Resolved]
  - Dysuria [Recovered/Resolved]
  - Musculoskeletal chest pain [Not Recovered/Not Resolved]
  - Pain in extremity [Not Recovered/Not Resolved]
  - Fall [Recovered/Resolved]
  - Ear pain [Not Recovered/Not Resolved]
  - Diarrhoea [Recovered/Resolved]
  - Rotator cuff syndrome [Not Recovered/Not Resolved]
  - Gait disturbance [Recovered/Resolved]
  - Body height decreased [Recovered/Resolved]
  - Oropharyngeal pain [Recovered/Resolved]
  - Influenza [Recovered/Resolved]
  - Rectal prolapse [Recovering/Resolving]
  - Weight increased [Unknown]
  - Anorectal disorder [Unknown]
  - Palpitations [Recovered/Resolved]
  - Acne [Recovered/Resolved]
  - Neck pain [Recovered/Resolved]
  - Pollakiuria [Not Recovered/Not Resolved]
  - Ocular discomfort [Recovered/Resolved]
  - Vaccination site pain [Recovered/Resolved]
  - Musculoskeletal pain [Not Recovered/Not Resolved]
  - Productive cough [Recovered/Resolved]
  - Prostatic disorder [Not Recovered/Not Resolved]
  - Gastrointestinal injury [Recovered/Resolved]
  - Drug tolerance decreased [Unknown]
  - Insomnia [Not Recovered/Not Resolved]
  - Nasal congestion [Recovering/Resolving]
  - Feeling abnormal [Recovering/Resolving]
  - Depression [Recovering/Resolving]
  - Chest pain [Recovered/Resolved]
  - Prostatitis [Not Recovered/Not Resolved]
  - Muscle spasms [Unknown]
  - Toothache [Unknown]
  - Facial pain [Unknown]
  - Oral pain [Unknown]
  - Injury [Unknown]
  - Walking aid user [Unknown]
  - Malaise [Not Recovered/Not Resolved]
  - Reduced bladder capacity [Unknown]
  - Ligament sprain [Recovered/Resolved]
  - Loss of personal independence in daily activities [Recovered/Resolved]
  - Chondropathy [Unknown]
  - Pain [Unknown]
  - Fear [Unknown]
  - Treatment noncompliance [Unknown]
  - Vision blurred [Not Recovered/Not Resolved]
  - Dizziness [Recovered/Resolved]
  - Pyrexia [Recovered/Resolved]
  - Bone pain [Recovered/Resolved]
  - Back pain [Recovering/Resolving]
  - Headache [Recovered/Resolved]
  - Arthralgia [Not Recovered/Not Resolved]
  - Product dose omission issue [Unknown]
  - Incorrect dose administered [Unknown]
  - Product prescribing error [Unknown]
  - Inappropriate schedule of product administration [Unknown]

NARRATIVE: CASE EVENT DATE: 20141101
